FAERS Safety Report 9963904 (Version 1)
Quarter: 2014Q1

REPORT INFORMATION
  Report Type: Spontaneous
  Country: FR (occurrence: FR)
  Receive Date: 20140305
  Receipt Date: 20140305
  Transmission Date: 20141002
  Serious: Yes (Hospitalization)
  Sender: FDA-Public Use
  Company Number: PHHY2014FR025538

PATIENT
  Age: 54 Year
  Sex: Female

DRUGS (2)
  1. SPIRAMYCIN+METRONIDAZOLE SANDOZ [Suspect]
     Indication: INFECTION PROPHYLAXIS
     Dosage: 1 DF, TID
     Route: 048
     Dates: start: 200905, end: 200905
  2. SIMVASTATIN [Concomitant]

REACTIONS (3)
  - Fall [Recovered/Resolved]
  - Asthenia [Recovered/Resolved]
  - Dizziness [Recovered/Resolved]
